FAERS Safety Report 4899337-1 (Version None)
Quarter: 2006Q1

REPORT INFORMATION
  Report Type: 
  Country: None (occurrence: None)
  Receive Date: 20060131
  Receipt Date: 20060118
  Transmission Date: 20060701
  Serious: Yes (Hospitalization)
  Sender: FDA-Public Use
  Company Number: 2005172643

PATIENT
  Age: 56 Year
  Sex: Female
  Weight: 45.6 kg

DRUGS (1)
  1. SULFASALAZINE [Suspect]
     Indication: RHEUMATOID ARTHRITIS
     Dosage: 1000 MG (DAILY), ORAL
     Route: 048
     Dates: start: 20050201, end: 20050912

REACTIONS (1)
  - INTERSTITIAL LUNG DISEASE [None]
